FAERS Safety Report 4774110-3 (Version None)
Quarter: 2005Q3

REPORT INFORMATION
  Report Type: 
  Country: None (occurrence: None)
  Receive Date: 20050914
  Receipt Date: 20050401
  Transmission Date: 20060218
  Serious: Yes (Other)
  Sender: FDA-Public Use
  Company Number: 163-20785-05040165

PATIENT
  Sex: Male

DRUGS (7)
  1. THALOMID [Suspect]
     Indication: PROSTATIC INTRAEPITHELIAL NEOPLASIA
     Dosage: 200 MG OR PLACEBO, DAILY, ORAL; SEE IMAGE
     Route: 048
     Dates: start: 20001017
  2. THALOMID [Suspect]
     Indication: PROSTATIC INTRAEPITHELIAL NEOPLASIA
     Dosage: 200 MG OR PLACEBO, DAILY, ORAL; SEE IMAGE
     Route: 048
     Dates: start: 20010412
  3. THALOMID [Suspect]
     Indication: PROSTATIC INTRAEPITHELIAL NEOPLASIA
     Dosage: 200 MG OR PLACEBO, DAILY, ORAL; SEE IMAGE
     Route: 048
     Dates: start: 20020401
  4. LEUPROLIDE ACETATE [Suspect]
     Indication: PROSTATIC INTRAEPITHELIAL NEOPLASIA
     Dosage: (L) 7.5 MG IM
     Route: 030
     Dates: start: 20001017
  5. LEUPROLIDE ACETATE [Suspect]
     Indication: PROSTATIC INTRAEPITHELIAL NEOPLASIA
     Dosage: (L) 7.5 MG IM
     Route: 030
     Dates: start: 20010412
  6. LEUPROLIDE ACETATE [Suspect]
     Indication: PROSTATIC INTRAEPITHELIAL NEOPLASIA
     Dosage: (L) 7.5 MG IM
     Route: 030
     Dates: start: 20020401
  7. GOSERELIN [Suspect]
     Dosage: 3.6 MG SC; SEE IMAGE
     Route: 058
     Dates: start: 20001017

REACTIONS (2)
  - CEREBRAL ISCHAEMIA [None]
  - DIZZINESS [None]
